FAERS Safety Report 21754090 (Version 3)
Quarter: 2023Q1

REPORT INFORMATION
  Report Type: Spontaneous
  Country: US (occurrence: US)
  Receive Date: 20221220
  Receipt Date: 20230215
  Transmission Date: 20230418
  Serious: Yes (Disabling, Other)
  Sender: FDA-Public Use
  Company Number: US-SANOFI-01410885

PATIENT
  Age: 89 Year
  Sex: Female

DRUGS (3)
  1. DUPIXENT [Suspect]
     Active Substance: DUPILUMAB
     Indication: Eczema
     Dosage: 300 MG, PRN
     Route: 065
  2. ENTRESTO [Concomitant]
     Active Substance: SACUBITRIL\VALSARTAN
     Dosage: 24 MG/26 MG, Q12H
  3. CARVEDILOL [Concomitant]
     Active Substance: CARVEDILOL
     Dosage: 3000/125, QD

REACTIONS (10)
  - Pulmonary oedema [Recovering/Resolving]
  - Balance disorder [Unknown]
  - Cardiac disorder [Unknown]
  - Hypertension [Unknown]
  - Joint swelling [Unknown]
  - Feeling abnormal [Recovering/Resolving]
  - Dyspnoea [Unknown]
  - Gastrooesophageal reflux disease [Unknown]
  - Pain [Unknown]
  - Inappropriate schedule of product administration [Unknown]
